FAERS Safety Report 6711904-9 (Version None)
Quarter: 2010Q2

REPORT INFORMATION
  Report Type: 
  Country: None (occurrence: None)
  Receive Date: 20100505
  Receipt Date: 20100408
  Transmission Date: 20101027
  Serious: Yes (Hospitalization)
  Sender: FDA-Public Use
  Company Number: AT-MERCK-1004AUT00003

PATIENT
  Age: 77 Year
  Sex: Male
  Weight: 100 kg

DRUGS (18)
  1. PRIMAXIN [Suspect]
     Indication: GASTROENTERITIS
     Route: 041
     Dates: start: 20090706, end: 20090813
  2. PRIMAXIN [Suspect]
     Indication: PYREXIA
     Route: 041
     Dates: start: 20090706, end: 20090813
  3. SIMVASTATIN [Concomitant]
     Route: 048
  4. MIXTARD HUMAN 70/30 [Concomitant]
     Indication: DIABETES MELLITUS
     Route: 065
  5. CARVEDILOL [Concomitant]
     Route: 048
  6. URSO FALK [Concomitant]
     Route: 048
  7. URBASON [Concomitant]
     Route: 048
     Dates: start: 20090829, end: 20090904
  8. URBASON [Concomitant]
     Route: 048
     Dates: start: 20090822, end: 20090828
  9. URBASON [Concomitant]
     Route: 048
     Dates: start: 20090815, end: 20090821
  10. URBASON [Concomitant]
     Route: 048
     Dates: end: 20090814
  11. ALNA [Concomitant]
     Route: 048
  12. ENALAPRIL MALEATE AND HYDROCHLOROTHIAZIDE [Concomitant]
     Route: 048
  13. KALIORAL [Concomitant]
     Route: 048
  14. LASIX [Concomitant]
     Route: 048
  15. LENDORM [Concomitant]
     Route: 048
  16. MAXI KALZ VIT D3 [Concomitant]
     Route: 065
  17. PANTOPRAZOLE [Concomitant]
     Route: 048
  18. PLAVIX [Concomitant]
     Route: 048

REACTIONS (1)
  - DRUG RASH WITH EOSINOPHILIA AND SYSTEMIC SYMPTOMS [None]
